FAERS Safety Report 15509614 (Version 1)
Quarter: 2018Q4

REPORT INFORMATION
  Report Type: Spontaneous
  Country: CN (occurrence: CN)
  Receive Date: 20181016
  Receipt Date: 20181016
  Transmission Date: 20190205
  Serious: Yes (Other)
  Sender: FDA-Public Use
  Company Number: CN-009507513-1810CHN006400

PATIENT
  Age: 87 Year
  Sex: Male
  Weight: 52 kg

DRUGS (1)
  1. TIENAM [Suspect]
     Active Substance: CILASTATIN SODIUM\IMIPENEM
     Indication: BRONCHITIS
     Dosage: 0.5 G, TID
     Route: 041
     Dates: start: 20180624, end: 20180625

REACTIONS (2)
  - Depressed level of consciousness [Recovering/Resolving]
  - Delirium [Recovering/Resolving]

NARRATIVE: CASE EVENT DATE: 20180625
